FAERS Safety Report 8447819-8 (Version None)
Quarter: 2012Q2

REPORT INFORMATION
  Report Type: 
  Country: None (occurrence: None)
  Receive Date: 20120619
  Receipt Date: 20120611
  Transmission Date: 20120825
  Serious: Yes (Hospitalization, Other)
  Sender: FDA-Public Use
  Company Number: BR-SANOFI-AVENTIS-2012SA041413

PATIENT
  Sex: Male
  Weight: 1.7 kg

DRUGS (2)
  1. SOLOSTAR [Suspect]
     Indication: DEVICE THERAPY
     Dates: start: 20110827
  2. LANTUS [Suspect]
     Dosage: ROUTE: TRANSPLACENTAL + TRANSMAMMARYPATIENT'S MOTHER RECEIVED INSULIN GLARGINE AT 26 IU DAILY
     Dates: start: 20110827

REACTIONS (2)
  - PREMATURE BABY [None]
  - EXPOSURE DURING BREAST FEEDING [None]
